FAERS Safety Report 13345244 (Version 1)
Quarter: 2017Q1

REPORT INFORMATION
  Report Type: Spontaneous
  Country: US (occurrence: US)
  Receive Date: 20170316
  Receipt Date: 20170316
  Transmission Date: 20170428
  Serious: Yes (Other)
  Sender: FDA-Public Use
  Company Number: None

PATIENT
  Age: 68 Year
  Sex: Female
  Weight: 70.65 kg

DRUGS (16)
  1. HYDROCHLOROTHIAZIDE. [Concomitant]
     Active Substance: HYDROCHLOROTHIAZIDE
  2. ATORVASTATIN [Concomitant]
     Active Substance: ATORVASTATIN
  3. LANSOPRAZOLE DR [Concomitant]
  4. MAGNESIUM [Concomitant]
     Active Substance: MAGNESIUM
  5. GLYBURIDE. [Concomitant]
     Active Substance: GLYBURIDE
  6. ZADITOR [Concomitant]
     Active Substance: KETOTIFEN FUMARATE
  7. TYLENOL [Concomitant]
     Active Substance: ACETAMINOPHEN
  8. CLOBETASOL FOAM [Concomitant]
  9. LEVOTHYROXINE. [Concomitant]
     Active Substance: LEVOTHYROXINE
  10. BIT D [Concomitant]
  11. TRADJENTA [Concomitant]
     Active Substance: LINAGLIPTIN
  12. NYSTATIN POWDER [Concomitant]
     Active Substance: NYSTATIN
  13. CALCIUM [Concomitant]
     Active Substance: CALCIUM
  14. PLAQUENIL [Suspect]
     Active Substance: HYDROXYCHLOROQUINE SULFATE
     Indication: SYSTEMIC LUPUS ERYTHEMATOSUS
     Dosage: ?          QUANTITY:1 TABLET(S);?
     Route: 048
  15. AZATHIOPRINE. [Concomitant]
     Active Substance: AZATHIOPRINE
  16. LISINOPRIL/HCTZ [Concomitant]
     Active Substance: HYDROCHLOROTHIAZIDE\LISINOPRIL

REACTIONS (3)
  - Visual acuity reduced [None]
  - Toxicity to various agents [None]
  - Retinal disorder [None]

NARRATIVE: CASE EVENT DATE: 20140417
